FAERS Safety Report 6100459-8 (Version None)
Quarter: 2009Q1

REPORT INFORMATION
  Report Type: 
  Country: None (occurrence: None)
  Receive Date: 20090227
  Receipt Date: 20090227
  Transmission Date: 20090719
  Serious: Yes (Life-Threatening, Hospitalization)
  Sender: FDA-Public Use
  Company Number: None

PATIENT
  Age: 7 Month
  Sex: Female
  Weight: 8.1647 kg

DRUGS (4)
  1. AMOXICILLIN [Suspect]
     Indication: COUGH
     Dosage: 1 TEASPOON TWICE A DAY PO THREE DOSES TOTAL
     Route: 048
     Dates: start: 20090216, end: 20090217
  2. AMOXICILLIN [Suspect]
     Indication: NASOPHARYNGITIS
     Dosage: 1 TEASPOON TWICE A DAY PO THREE DOSES TOTAL
     Route: 048
     Dates: start: 20090216, end: 20090217
  3. AMOXICILLIN [Suspect]
     Indication: PHARYNGEAL ERYTHEMA
     Dosage: 1 TEASPOON TWICE A DAY PO THREE DOSES TOTAL
     Route: 048
     Dates: start: 20090216, end: 20090217
  4. AMOXICILLIN [Suspect]
     Indication: RHINORRHOEA
     Dosage: 1 TEASPOON TWICE A DAY PO THREE DOSES TOTAL
     Route: 048
     Dates: start: 20090216, end: 20090217

REACTIONS (3)
  - MUCOUS STOOLS [None]
  - PRODUCT QUALITY ISSUE [None]
  - RECTAL HAEMORRHAGE [None]
